FAERS Safety Report 9439783 (Version 1)
Quarter: 2013Q3

REPORT INFORMATION
  Report Type: Spontaneous
  Country: FR (occurrence: FR)
  Receive Date: 20130805
  Receipt Date: 20130805
  Transmission Date: 20140515
  Serious: Yes (Hospitalization)
  Sender: FDA-Public Use
  Company Number: FR-JNJFOC-20130715866

PATIENT
  Age: 78 Year
  Sex: Male

DRUGS (5)
  1. XARELTO [Suspect]
     Indication: PRODUCT USED FOR UNKNOWN INDICATION
     Route: 048
     Dates: start: 20121115, end: 20121219
  2. PERMIXON [Concomitant]
     Indication: MICTURITION DISORDER
     Route: 048
  3. SPAGULAX [Concomitant]
     Indication: CONSTIPATION
     Route: 048
  4. KARDEGIC [Concomitant]
     Route: 048
  5. BI-TILDIEM [Concomitant]
     Indication: HYPERTENSION
     Route: 048

REACTIONS (1)
  - Headache [Recovered/Resolved]
